FAERS Safety Report 5059566-3 (Version None)
Quarter: 2006Q2

REPORT INFORMATION
  Report Type: 
  Country: None (occurrence: None)
  Receive Date: 20060629
  Receipt Date: 20060224
  Transmission Date: 20061013
  Serious: No
  Sender: FDA-Public Use
  Company Number: PHEH2006US02338

PATIENT
  Age: 82 Year
  Sex: Male

DRUGS (2)
  1. ENABLEX [Suspect]
     Indication: HYPERTONIC BLADDER
     Dosage: 7.5 MG, QD, ORAL;  15 MG, QD, ORAL
     Route: 048
     Dates: start: 20060128
  2. ENABLEX [Suspect]
     Indication: HYPERTONIC BLADDER
     Dosage: 7.5 MG, QD, ORAL;  15 MG, QD, ORAL
     Route: 048
     Dates: start: 20060205

REACTIONS (2)
  - CONSTIPATION [None]
  - STOMACH DISCOMFORT [None]
